FAERS Safety Report 24643765 (Version 1)
Quarter: 2024Q4

REPORT INFORMATION
  Report Type: Spontaneous
  Country: US (occurrence: US)
  Receive Date: 20241120
  Receipt Date: 20241120
  Transmission Date: 20250114
  Serious: No
  Sender: ABBVIE
  Company Number: US-ABBVIE-6001040

PATIENT
  Sex: Female

DRUGS (3)
  1. CARIPRAZINE [Suspect]
     Active Substance: CARIPRAZINE
     Indication: Depression
     Dosage: 1.5 MILLIGRAM DAILY, LAST ADMIN DATE- 2024
     Route: 048
     Dates: start: 202405
  2. CARIPRAZINE [Suspect]
     Active Substance: CARIPRAZINE
     Indication: Depression
     Dosage: DOSE WAS REDUCED FROM 1.5 MILLIGRAM DAILY TO 1.5 MILLIGRAM EVERY OTHER DAY
     Route: 048
     Dates: start: 202410, end: 202410
  3. TIRZEPATIDE [Suspect]
     Active Substance: TIRZEPATIDE
     Indication: Product used for unknown indication
     Route: 065
     Dates: start: 202409

REACTIONS (2)
  - Drug interaction [Unknown]
  - Restlessness [Not Recovered/Not Resolved]

NARRATIVE: CASE EVENT DATE: 20240101
